FAERS Safety Report 12443379 (Version 1)
Quarter: 2016Q2

REPORT INFORMATION
  Report Type: Spontaneous
  Country: US (occurrence: US)
  Receive Date: 20160607
  Receipt Date: 20160607
  Transmission Date: 20160815
  Serious: Yes (Hospitalization)
  Sender: FDA-Public Use
  Company Number: US-BIOGEN-2016BI00246764

PATIENT
  Sex: Female

DRUGS (1)
  1. AVONEX [Suspect]
     Active Substance: INTERFERON BETA-1A
     Indication: MULTIPLE SCLEROSIS
     Route: 030
     Dates: start: 200804

REACTIONS (5)
  - Skin discolouration [Unknown]
  - Muscular weakness [Unknown]
  - Ankle fracture [Unknown]
  - Fall [Recovered/Resolved]
  - Cardiovascular disorder [Unknown]
